FAERS Safety Report 12850652 (Version 1)
Quarter: 2016Q4

REPORT INFORMATION
  Report Type: Spontaneous
  Country: FR (occurrence: FR)
  Receive Date: 20161014
  Receipt Date: 20161014
  Transmission Date: 20170207
  Serious: Yes (Hospitalization, Other)
  Sender: FDA-Public Use
  Company Number: FR-ASTRAZENECA-2016SF07619

PATIENT
  Age: 21063 Day
  Sex: Female

DRUGS (9)
  1. RIVOTRIL [Concomitant]
     Active Substance: CLONAZEPAM
  2. LANSOPRAZOLE. [Concomitant]
     Active Substance: LANSOPRAZOLE
  3. INEXIUM [Suspect]
     Active Substance: ESOMEPRAZOLE
     Route: 048
     Dates: start: 201603, end: 20160512
  4. SOLUPRED [Concomitant]
     Active Substance: PREDNISOLONE
     Dates: start: 20160525, end: 20160602
  5. MABTHERA [Suspect]
     Active Substance: RITUXIMAB
     Route: 042
     Dates: start: 20160427, end: 20160427
  6. TAHOR [Suspect]
     Active Substance: ATORVASTATIN CALCIUM
     Route: 048
     Dates: end: 20160512
  7. SOLUPRED [Concomitant]
     Active Substance: PREDNISOLONE
     Dates: start: 20160602
  8. SOLUPRED [Concomitant]
     Active Substance: PREDNISOLONE
     Dosage: 1.5DF A DAY OF 20MG
     Dates: end: 20160525
  9. VERSATIS [Concomitant]
     Active Substance: LIDOCAINE
     Dosage: 5%

REACTIONS (3)
  - Hepatocellular injury [Recovered/Resolved]
  - Thrombocytopenia [Unknown]
  - Rectal ulcer haemorrhage [Unknown]

NARRATIVE: CASE EVENT DATE: 20160502
